FAERS Safety Report 6878150-X (Version None)
Quarter: 2010Q2

REPORT INFORMATION
  Report Type: 
  Country: None (occurrence: None)
  Receive Date: 20100623
  Receipt Date: 20100202
  Transmission Date: 20101027
  Serious: Yes (Other)
  Sender: FDA-Public Use
  Company Number: 2010BH002411

PATIENT

DRUGS (1)
  1. HEPARIN SODIUM [Suspect]
     Indication: THROMBOSIS

REACTIONS (1)
  - HEPARIN-INDUCED THROMBOCYTOPENIA [None]
